FAERS Safety Report 8433457-X (Version None)
Quarter: 2012Q2

REPORT INFORMATION
  Report Type: 
  Country: None (occurrence: None)
  Receive Date: 20120323
  Receipt Date: 20110706
  Transmission Date: 20120825
  Serious: Yes (Other)
  Sender: FDA-Public Use
  Company Number: 163-21880-11070904

PATIENT
  Age: 68 Year
  Sex: Male

DRUGS (1)
  1. REVLIMID [Suspect]
     Indication: MULTIPLE MYELOMA
     Dosage: 10 MG, DAILY 21/28, PO
     Route: 048
     Dates: start: 20110317, end: 20110401

REACTIONS (3)
  - PNEUMONIA [None]
  - RENAL FAILURE [None]
  - THROMBOSIS [None]
